FAERS Safety Report 11822091 (Version 2)
Quarter: 2016Q1

REPORT INFORMATION
  Report Type: Spontaneous
  Country: US (occurrence: US)
  Receive Date: 20151210
  Receipt Date: 20160202
  Transmission Date: 20160525
  Serious: No
  Sender: FDA-Public Use
  Company Number: US-JNJFOC-20150703129

PATIENT
  Age: 79 Year
  Sex: Female

DRUGS (8)
  1. PLAQUENIL [Concomitant]
     Active Substance: HYDROXYCHLOROQUINE SULFATE
  2. IMBRUVICA [Suspect]
     Active Substance: IBRUTINIB
     Indication: CHRONIC LYMPHOCYTIC LEUKAEMIA (IN REMISSION)
     Route: 048
  3. PACLITAXEL. [Concomitant]
     Active Substance: PACLITAXEL
  4. ATIVAN [Concomitant]
     Active Substance: LORAZEPAM
  5. SULFUR. [Concomitant]
     Active Substance: SULFUR
  6. LORAZEPAM. [Concomitant]
     Active Substance: LORAZEPAM
  7. IMBRUVICA [Suspect]
     Active Substance: IBRUTINIB
     Indication: CHRONIC LYMPHOCYTIC LEUKAEMIA (IN REMISSION)
     Route: 048
     Dates: start: 20150528
  8. CODEINE PHOSPHATE [Concomitant]
     Active Substance: CODEINE PHOSPHATE

REACTIONS (5)
  - Constipation [Unknown]
  - Abdominal discomfort [Unknown]
  - Nausea [Recovering/Resolving]
  - Incorrect dose administered [Not Recovered/Not Resolved]
  - Fatigue [Unknown]

NARRATIVE: CASE EVENT DATE: 2015
